FAERS Safety Report 5816790-7 (Version None)
Quarter: 2008Q3

REPORT INFORMATION
  Report Type: 
  Country: None (occurrence: None)
  Receive Date: 20080721
  Receipt Date: 20080702
  Transmission Date: 20090109
  Serious: No
  Sender: FDA-Public Use
  Company Number: US-BOEHRINGER INGELHEIM GMBH, GERMANY-2008-BP-10441BP

PATIENT
  Age: 90 Year
  Sex: Female

DRUGS (2)
  1. ZANTAC 75 [Suspect]
     Indication: NAUSEA
     Route: 048
     Dates: start: 20080630
  2. DIOVAN [Concomitant]

REACTIONS (1)
  - MELAENA [None]
